FAERS Safety Report 6172493-3 (Version None)
Quarter: 2009Q2

REPORT INFORMATION
  Report Type: 
  Country: None (occurrence: None)
  Receive Date: 20090427
  Receipt Date: 20090422
  Transmission Date: 20091009
  Serious: Yes (Life-Threatening)
  Sender: FDA-Public Use
  Company Number: 2008TJ0252FU2

PATIENT
  Age: 47 Year
  Sex: Female

DRUGS (4)
  1. TWINJECT 0.3 [Suspect]
     Indication: HYPERSENSITIVITY
     Dosage: 0.3 MG, PRN
     Dates: start: 20081010, end: 20081010
  2. DIOVAN HCT [Concomitant]
  3. BACLOFEN [Concomitant]
  4. TYLENOL W/ CODEINE NO. 2 [Concomitant]

REACTIONS (2)
  - NO THERAPEUTIC RESPONSE [None]
  - PRODUCT QUALITY ISSUE [None]
